FAERS Safety Report 19295638 (Version 3)
Quarter: 2021Q3

REPORT INFORMATION
  Report Type: Report from Study
  Country: AR (occurrence: AR)
  Receive Date: 20210524
  Receipt Date: 20210909
  Transmission Date: 20211014
  Serious: Yes (Other)
  Sender: FDA-Public Use
  Company Number: NVSC2020AR267979

PATIENT
  Age: 73 Year
  Sex: Male

DRUGS (3)
  1. COSENTYX [Suspect]
     Active Substance: SECUKINUMAB
     Dosage: 300 MG, QMO
     Route: 058
     Dates: start: 20190809, end: 20200616
  2. COSENTYX [Suspect]
     Active Substance: SECUKINUMAB
     Dosage: 300 MG, QMO
     Route: 058
  3. COSENTYX [Suspect]
     Active Substance: SECUKINUMAB
     Indication: PSORIASIS
     Dosage: 300 MG, QMO
     Route: 058
     Dates: start: 20170809

REACTIONS (11)
  - Joint injury [Unknown]
  - Memory impairment [Unknown]
  - Gait inability [Unknown]
  - Eye discharge [Unknown]
  - Limb injury [Unknown]
  - Somnolence [Unknown]
  - Conjunctivitis [Recovered/Resolved]
  - Furuncle [Unknown]
  - Psoriasis [Unknown]
  - Paralysis [Unknown]
  - Fall [Unknown]

NARRATIVE: CASE EVENT DATE: 20200320
